FAERS Safety Report 20596967 (Version 1)
Quarter: 2022Q1

REPORT INFORMATION
  Report Type: Spontaneous
  Country: US (occurrence: US)
  Receive Date: 20220315
  Receipt Date: 20220315
  Transmission Date: 20220423
  Serious: No
  Sender: FDA-Public Use
  Company Number: US-PERRIGO-21US010116

PATIENT
  Age: 32 Year
  Sex: Female
  Weight: 43.084 kg

DRUGS (1)
  1. NICOTINE POLACRILEX [Suspect]
     Active Substance: NICOTINE
     Indication: Smoking cessation therapy
     Dosage: 2 MG, EVERY HOUR
     Route: 002
     Dates: start: 202101, end: 2021

REACTIONS (5)
  - Tongue discolouration [Recovering/Resolving]
  - Swollen tongue [Recovering/Resolving]
  - Tongue discomfort [Recovering/Resolving]
  - Oral disorder [None]
  - Stomatitis [Recovering/Resolving]

NARRATIVE: CASE EVENT DATE: 20210101
